FAERS Safety Report 4935436-3 (Version None)
Quarter: 2006Q1

REPORT INFORMATION
  Report Type: 
  Country: None (occurrence: None)
  Receive Date: 20060307
  Receipt Date: 20050220
  Transmission Date: 20060701
  Serious: Yes (Other)
  Sender: FDA-Public Use
  Company Number: PL-GLAXOSMITHKLINE-B0414164A

PATIENT
  Age: 25 Year
  Sex: Female

DRUGS (4)
  1. LAMOTRIGINE [Suspect]
     Indication: EPILEPSY
     Route: 065
     Dates: start: 20050131
  2. ACIDUM FOLICUM [Concomitant]
     Indication: CONTRACEPTION
     Dates: start: 20041101, end: 20050701
  3. CLORAZEPATE DIPOTASSIUM [Concomitant]
     Indication: EPILEPSY
  4. FUSAFUNGINE AER [Concomitant]
     Indication: PHARYNGITIS
     Route: 065
     Dates: start: 20050701

REACTIONS (5)
  - CONVULSION [None]
  - DRUG EXPOSURE DURING PREGNANCY [None]
  - INDUCED LABOUR [None]
  - INTRA-UTERINE DEATH [None]
  - NEONATAL ASPIRATION [None]
